FAERS Safety Report 16449777 (Version 1)
Quarter: 2019Q2

REPORT INFORMATION
  Report Type: Not Available
  Country: US (occurrence: US)
  Receive Date: 20190619
  Receipt Date: 20190619
  Transmission Date: 20190711
  Serious: No
  Sender: FDA-Public Use
  Company Number: US-NEUROCRINE BIOSCIENCES INC.-2019NBI01562

PATIENT
  Age: 65 Year
  Sex: Female

DRUGS (11)
  1. CELEXA [Concomitant]
     Active Substance: CITALOPRAM HYDROBROMIDE
  2. ROPINIROLE. [Concomitant]
     Active Substance: ROPINIROLE
  3. LEVOTHYROXINE. [Concomitant]
     Active Substance: LEVOTHYROXINE
  4. HALOPERIDOL. [Concomitant]
     Active Substance: HALOPERIDOL
  5. LISINOPRIL. [Concomitant]
     Active Substance: LISINOPRIL
  6. CELEBREX [Concomitant]
     Active Substance: CELECOXIB
  7. BUPROPION. [Concomitant]
     Active Substance: BUPROPION
  8. INGREZZA [Suspect]
     Active Substance: VALBENAZINE
     Indication: TARDIVE DYSKINESIA
     Route: 048
     Dates: start: 20190415
  9. HYDROCHLOROTHIAZIDE. [Concomitant]
     Active Substance: HYDROCHLOROTHIAZIDE
  10. RANITIDINE. [Concomitant]
     Active Substance: RANITIDINE
  11. SIMVASTATIN. [Concomitant]
     Active Substance: SIMVASTATIN

REACTIONS (1)
  - Muscle spasms [Not Recovered/Not Resolved]

NARRATIVE: CASE EVENT DATE: 20190429
